FAERS Safety Report 7906313-0 (Version None)
Quarter: 2011Q4

REPORT INFORMATION
  Report Type: 
  Country: None (occurrence: None)
  Receive Date: 20111110
  Receipt Date: 20111107
  Transmission Date: 20120403
  Serious: Yes (Hospitalization)
  Sender: FDA-Public Use
  Company Number: ES-ABBOTT-11P-144-0872245-00

PATIENT
  Age: 35 Year
  Sex: Female

DRUGS (2)
  1. KALETRA [Suspect]
     Indication: HIV INFECTION
     Route: 048
  2. ANESTHESIA [Concomitant]
     Indication: CAESAREAN SECTION
     Route: 024
     Dates: start: 20110610, end: 20110610

REACTIONS (1)
  - PREMATURE RUPTURE OF MEMBRANES [None]
